FAERS Safety Report 13358769 (Version 2)
Quarter: 2017Q3

REPORT INFORMATION
  Report Type: Spontaneous
  Country: US (occurrence: US)
  Receive Date: 20170322
  Receipt Date: 20170816
  Transmission Date: 20171127
  Serious: Yes (Hospitalization, Other)
  Sender: FDA-Public Use
  Company Number: US-LUNDBECK-DKLU2027946

PATIENT
  Sex: Male

DRUGS (4)
  1. NORTHERA [Suspect]
     Active Substance: DROXIDOPA
     Route: 065
  2. NORTHERA [Suspect]
     Active Substance: DROXIDOPA
     Indication: AUTONOMIC NEUROPATHY
     Dosage: SCHEDULE C AND TITRATING
     Route: 065
     Dates: start: 20170223
  3. NORTHERA [Suspect]
     Active Substance: DROXIDOPA
     Route: 065
  4. NORTHERA [Suspect]
     Active Substance: DROXIDOPA
     Route: 048
     Dates: start: 20170220

REACTIONS (9)
  - Abscess neck [Unknown]
  - Peripheral vascular disorder [Recovering/Resolving]
  - Rash pruritic [Unknown]
  - Dizziness [Unknown]
  - Cholelithiasis [Recovered/Resolved]
  - Cardiovascular disorder [Unknown]
  - Blood pressure measurement [Unknown]
  - Chest wall abscess [Unknown]
  - Thrombosis [Unknown]
